FAERS Safety Report 6825181-1 (Version None)
Quarter: 2010Q3

REPORT INFORMATION
  Report Type: 
  Country: None (occurrence: None)
  Receive Date: 20100708
  Receipt Date: 20061127
  Transmission Date: 20110219
  Serious: No
  Sender: FDA-Public Use
  Company Number: US-PFIZER INC-2006148020

PATIENT
  Sex: Female

DRUGS (5)
  1. CHANTIX [Suspect]
     Dates: start: 20061101
  2. NEURONTIN [Concomitant]
  3. FOSAMAX [Concomitant]
  4. CALCIUM CARBONATE [Concomitant]
  5. CLARITIN [Concomitant]

REACTIONS (1)
  - NAUSEA [None]
